FAERS Safety Report 5336255-9 (Version None)
Quarter: 2007Q2

REPORT INFORMATION
  Report Type: 
  Country: None (occurrence: None)
  Receive Date: 20070315
  Receipt Date: 20070116
  Transmission Date: 20071010
  Serious: Yes (Other)
  Sender: FDA-Public Use
  Company Number: BDI-008986

PATIENT
  Age: 60 Year
  Sex: Male

DRUGS (3)
  1. MULTIHANCE [Suspect]
     Indication: ANGIOGRAM
     Dosage: 30 ML ONCE IV
     Route: 042
     Dates: start: 20061229, end: 20061229
  2. MULTIHANCE [Suspect]
     Indication: NUCLEAR MAGNETIC RESONANCE IMAGING
     Dosage: 30 ML ONCE IV
     Route: 042
     Dates: start: 20061229, end: 20061229
  3. MULTIHANCE [Suspect]
     Indication: RENAL ARTERY STENOSIS
     Dosage: 30 ML ONCE IV
     Route: 042
     Dates: start: 20061229, end: 20061229

REACTIONS (1)
  - HYPERSENSITIVITY [None]
